FAERS Safety Report 25633998 (Version 4)
Quarter: 2025Q4

REPORT INFORMATION
  Report Type: Spontaneous
  Country: US (occurrence: US)
  Receive Date: 20250801
  Receipt Date: 20251201
  Transmission Date: 20260118
  Serious: No
  Sender: SANOFI AVENTIS
  Company Number: US-SA-2025SA223930

PATIENT
  Age: 55 Year
  Sex: Male

DRUGS (2)
  1. DUPIXENT [Suspect]
     Active Substance: DUPILUMAB
     Indication: Nasal polyps
     Dosage: 300 MG, QOW
     Route: 058
     Dates: start: 20250522, end: 202509
  2. DUPIXENT [Suspect]
     Active Substance: DUPILUMAB
     Dosage: 300 MG, QOW
     Route: 058
     Dates: start: 20251008

REACTIONS (14)
  - Nasal congestion [Not Recovered/Not Resolved]
  - Condition aggravated [Unknown]
  - Back injury [Unknown]
  - Intervertebral disc protrusion [Unknown]
  - Pain [Unknown]
  - Rhinorrhoea [Unknown]
  - Condition aggravated [Unknown]
  - Product dose omission in error [Unknown]
  - Sinusitis [Unknown]
  - Nasal congestion [Unknown]
  - Nasal obstruction [Unknown]
  - Nasal discharge discolouration [Unknown]
  - Injection site pain [Unknown]
  - Inappropriate schedule of product administration [Unknown]

NARRATIVE: CASE EVENT DATE: 20250101
